FAERS Safety Report 9716175 (Version 1)
Quarter: 2013Q4

REPORT INFORMATION
  Report Type: Spontaneous
  Country: US (occurrence: None)
  Receive Date: 20131126
  Receipt Date: 20131126
  Transmission Date: 20140711
  Serious: Yes (Death)
  Sender: FDA-Public Use
  Company Number: None

PATIENT
  Age: 76 Year
  Sex: 0
  Weight: 89.5 kg

DRUGS (2)
  1. APIXABAN [Suspect]
     Indication: ATRIAL FIBRILLATION
     Dosage: 1 PILL BID ORAL
     Route: 048
  2. APIXABAN [Suspect]
     Indication: CORONARY ARTERY DISEASE
     Dosage: 1 PILL BID ORAL
     Route: 048

REACTIONS (2)
  - Cerebral haemorrhage [None]
  - Coma [None]
